FAERS Safety Report 7657328-1 (Version None)
Quarter: 2011Q3

REPORT INFORMATION
  Report Type: 
  Country: None (occurrence: None)
  Receive Date: 20110804
  Receipt Date: 20110802
  Transmission Date: 20111222
  Serious: Yes (Other)
  Sender: FDA-Public Use
  Company Number: PL-ABBOTT-11P-129-0843480-00

PATIENT
  Age: 21 Year
  Sex: Male
  Weight: 69 kg

DRUGS (1)
  1. HUMIRA [Suspect]
     Indication: ANKYLOSING SPONDYLITIS
     Route: 058
     Dates: start: 20101028, end: 20110802

REACTIONS (3)
  - WEIGHT DECREASED [None]
  - LOSS OF CONSCIOUSNESS [None]
  - CHEST PAIN [None]
